FAERS Safety Report 20049947 (Version 2)
Quarter: 2021Q4

REPORT INFORMATION
  Report Type: Report from Study
  Country: US (occurrence: US)
  Receive Date: 20211109
  Receipt Date: 20211202
  Transmission Date: 20220303
  Serious: Yes (Other)
  Sender: FDA-Public Use
  Company Number: US-TAKEDA-2021TUS067471

PATIENT
  Sex: Female

DRUGS (8)
  1. TEDUGLUTIDE [Suspect]
     Active Substance: TEDUGLUTIDE
     Indication: Short-bowel syndrome
     Dosage: 1.7 MILLIGRAM, QD
     Route: 058
     Dates: start: 20210923
  2. TEDUGLUTIDE [Suspect]
     Active Substance: TEDUGLUTIDE
     Indication: Short-bowel syndrome
     Dosage: 1.7 MILLIGRAM, QD
     Route: 058
     Dates: start: 20210923
  3. TEDUGLUTIDE [Suspect]
     Active Substance: TEDUGLUTIDE
     Indication: Short-bowel syndrome
     Dosage: 1.7 MILLIGRAM, QD
     Route: 058
     Dates: start: 20210923
  4. TEDUGLUTIDE [Suspect]
     Active Substance: TEDUGLUTIDE
     Indication: Short-bowel syndrome
     Dosage: 1.7 MILLIGRAM, QD
     Route: 058
     Dates: start: 20210923
  5. TEDUGLUTIDE [Suspect]
     Active Substance: TEDUGLUTIDE
     Dosage: 1.7 MILLIGRAM, QD
     Route: 058
     Dates: start: 202109
  6. TEDUGLUTIDE [Suspect]
     Active Substance: TEDUGLUTIDE
     Dosage: 1.7 MILLIGRAM, QD
     Route: 058
     Dates: start: 202109
  7. TEDUGLUTIDE [Suspect]
     Active Substance: TEDUGLUTIDE
     Dosage: 1.7 MILLIGRAM, QD
     Route: 058
     Dates: start: 202109
  8. TEDUGLUTIDE [Suspect]
     Active Substance: TEDUGLUTIDE
     Dosage: 1.7 MILLIGRAM, QD
     Route: 058
     Dates: start: 202109

REACTIONS (10)
  - Renal failure [Unknown]
  - Stoma site haemorrhage [Unknown]
  - Nausea [Unknown]
  - Vomiting [Unknown]
  - Abdominal pain [Unknown]
  - Appetite disorder [Unknown]
  - Headache [Unknown]
  - Cough [Unknown]
  - Flatulence [Unknown]
  - Therapy interrupted [Unknown]
